FAERS Safety Report 14348359 (Version 3)
Quarter: 2018Q2

REPORT INFORMATION
  Report Type: Not Available
  Country: US (occurrence: US)
  Receive Date: 20180103
  Receipt Date: 20180417
  Transmission Date: 20180711
  Serious: No
  Sender: FDA-Public Use
  Company Number: US-NEUROCRINE BIOSCIENCES INC.-2017NBI01465

PATIENT
  Age: 67 Year
  Sex: Female

DRUGS (7)
  1. KLONOPIN [Concomitant]
     Active Substance: CLONAZEPAM
     Indication: DYSTONIA
  2. MESTINON [Concomitant]
     Active Substance: PYRIDOSTIGMINE BROMIDE
     Indication: DRY EYE
     Dosage: TAKE 1/2 TABLET
  3. MESTINON [Concomitant]
     Active Substance: PYRIDOSTIGMINE BROMIDE
     Indication: DRY MOUTH
  4. BOTOX [Concomitant]
     Active Substance: ONABOTULINUMTOXINA
  5. INGREZZA [Suspect]
     Active Substance: VALBENAZINE
     Route: 048
     Dates: start: 20171019
  6. INGREZZA [Suspect]
     Active Substance: VALBENAZINE
     Indication: TARDIVE DYSKINESIA
     Route: 048
     Dates: start: 20171012, end: 20171018
  7. XENAZINE [Concomitant]
     Active Substance: TETRABENAZINE

REACTIONS (4)
  - Hypoaesthesia oral [Unknown]
  - Headache [Unknown]
  - Gait disturbance [Unknown]
  - Fatigue [Recovered/Resolved]

NARRATIVE: CASE EVENT DATE: 20171025
